FAERS Safety Report 5088700-4 (Version None)
Quarter: 2006Q3

REPORT INFORMATION
  Report Type: 
  Country: None (occurrence: None)
  Receive Date: 20060825
  Receipt Date: 20040524
  Transmission Date: 20061208
  Serious: Yes (Death, Hospitalization)
  Sender: FDA-Public Use
  Company Number: US-GILEAD-2004-0007095

PATIENT
  Sex: Male
  Weight: 103.88 kg

DRUGS (3)
  1. TENOFOVIR DISOPROXIL FUMARATE [Suspect]
     Indication: HEPATITIS B
     Route: 048
     Dates: start: 20030306, end: 20040304
  2. SUSTIVA [Concomitant]
     Dates: start: 20000315
  3. COMBIVIR [Concomitant]
     Dates: start: 20000315

REACTIONS (1)
  - SUDDEN DEATH [None]
